FAERS Safety Report 7883471-8 (Version None)
Quarter: 2011Q4

REPORT INFORMATION
  Report Type: 
  Country: None (occurrence: None)
  Receive Date: 20111102
  Receipt Date: 20111031
  Transmission Date: 20120403
  Serious: Yes (Hospitalization)
  Sender: FDA-Public Use
  Company Number: US-CEPHALON-2011005598

PATIENT
  Sex: Female
  Weight: 57 kg

DRUGS (7)
  1. PROVIGIL [Suspect]
     Indication: SOMNOLENCE
     Route: 048
     Dates: start: 20100101
  2. AMITIZA [Concomitant]
     Dates: start: 20100101
  3. CYMBALTA [Concomitant]
     Dates: start: 20040101
  4. TIZANIDINE HCL [Concomitant]
     Dates: start: 20100101
  5. AVENZA [Concomitant]
     Dates: start: 20100101
  6. MORPHINE [Concomitant]
     Dates: start: 20100101
  7. ZOCOR [Concomitant]
     Dates: start: 20110401

REACTIONS (5)
  - URINE ODOUR ABNORMAL [None]
  - URINE ABNORMALITY [None]
  - BLOOD URINE PRESENT [None]
  - URINARY BLADDER HAEMORRHAGE [None]
  - CYSTITIS NONINFECTIVE [None]
